FAERS Safety Report 6108564-7 (Version None)
Quarter: 2009Q1

REPORT INFORMATION
  Report Type: 
  Country: None (occurrence: None)
  Receive Date: 20090309
  Receipt Date: 20090223
  Transmission Date: 20090719
  Serious: Yes (Hospitalization, Disabling)
  Sender: FDA-Public Use
  Company Number: FI-ELI_LILLY_AND_COMPANY-FI200902005716

PATIENT
  Sex: Male

DRUGS (6)
  1. ZYPREXA [Suspect]
     Indication: BIPOLAR DISORDER
     Dosage: MG, DAILY (1/D)
     Route: 048
     Dates: end: 20080101
  2. ZYPREXA [Suspect]
     Dosage: 10 MG, DAILY (1/D)
     Route: 048
     Dates: start: 20080527, end: 20080811
  3. CISORDINOL /00075802/ [Concomitant]
     Indication: BIPOLAR DISORDER
     Dosage: 20 MG, UNK
     Route: 048
     Dates: start: 20080802, end: 20080101
  4. CISORDINOL /00075802/ [Concomitant]
     Dosage: 20 MG, UNK
     Route: 030
     Dates: start: 20080802, end: 20080101
  5. CISORDINOL /00075802/ [Concomitant]
     Dosage: 10 MG, UNK
     Route: 048
     Dates: start: 20080101, end: 20081006
  6. CISORDINOL /00075802/ [Concomitant]
     Dosage: 10 MG, UNK
     Route: 030
     Dates: start: 20080101, end: 20081006

REACTIONS (5)
  - ASTHENIA [None]
  - CLUMSINESS [None]
  - FEAR [None]
  - SLUGGISHNESS [None]
  - TREMOR [None]
